FAERS Safety Report 4288743-4 (Version None)
Quarter: 2004Q1

REPORT INFORMATION
  Report Type: 
  Country: None (occurrence: None)
  Receive Date: 20040205
  Receipt Date: 20040122
  Transmission Date: 20041129
  Serious: Yes (Life-Threatening)
  Sender: FDA-Public Use
  Company Number: 2004-UK-00061UK (0)

PATIENT
  Age: 65 Year
  Sex: Male

DRUGS (2)
  1. MICARDIS [Suspect]
     Indication: HYPERTENSION
     Dosage: 20 MG (NR), PO
     Route: 048
     Dates: start: 20031101
  2. RAMIPRIL [Suspect]
     Indication: HYPERTENSION
     Dosage: PO
     Route: 048
     Dates: start: 20030701

REACTIONS (2)
  - LARYNGEAL OEDEMA [None]
  - URTICARIA GENERALISED [None]
